FAERS Safety Report 5962491-4 (Version None)
Quarter: 2008Q4

REPORT INFORMATION
  Report Type: 
  Country: None (occurrence: None)
  Receive Date: 20081121
  Receipt Date: 20080409
  Transmission Date: 20090506
  Serious: Yes (Other)
  Sender: FDA-Public Use
  Company Number: CO-GENENTECH-271759

PATIENT
  Age: 16 Year
  Sex: Female

DRUGS (1)
  1. PULMOZYME [Suspect]
     Indication: CYSTIC FIBROSIS
     Dosage: UNK
     Dates: start: 20051101, end: 20070630

REACTIONS (4)
  - DRUG EXPOSURE DURING PREGNANCY [None]
  - ECLAMPSIA [None]
  - PREGNANCY [None]
  - PREMATURE LABOUR [None]
